FAERS Safety Report 6235725-9 (Version None)
Quarter: 2009Q2

REPORT INFORMATION
  Report Type: 
  Country: None (occurrence: None)
  Receive Date: 20090619
  Receipt Date: 20070605
  Transmission Date: 20091009
  Serious: Yes (Hospitalization, Other)
  Sender: FDA-Public Use
  Company Number: US-ASTRAZENECA-2006UW23155

PATIENT
  Age: 46 Year
  Sex: Male
  Weight: 130.6 kg

DRUGS (9)
  1. SEROQUEL [Suspect]
     Indication: DEPRESSION
     Route: 048
     Dates: start: 20050114
  2. SEROQUEL [Suspect]
     Dosage: 100 MG AND 500 MG
     Route: 048
     Dates: start: 20050307, end: 20050801
  3. ABILIFY [Concomitant]
     Dosage: TOTAL DAILY DOSE 10 MG
  4. ABILIFY [Concomitant]
     Dates: start: 20050323
  5. ZYPREXA [Concomitant]
     Dosage: TOTAL DAILY DOSE 5 MG
     Dates: start: 20050901
  6. COCAINE [Concomitant]
     Dates: start: 19960101
  7. WELLBUTRIN XL [Concomitant]
     Dates: start: 20050114
  8. LEXAPRO [Concomitant]
     Dates: start: 20050114
  9. UNITHROID [Concomitant]
     Dates: start: 20050306

REACTIONS (6)
  - BLOOD URINE PRESENT [None]
  - DIABETES MELLITUS [None]
  - PANCREATITIS [None]
  - RENAL CANCER [None]
  - RENAL MASS [None]
  - TYPE 1 DIABETES MELLITUS [None]
